FAERS Safety Report 25447212 (Version 2)
Quarter: 2025Q3

REPORT INFORMATION
  Report Type: Report from Study
  Country: US (occurrence: US)
  Receive Date: 20250617
  Receipt Date: 20250712
  Transmission Date: 20251021
  Serious: No
  Sender: SANOFI AVENTIS
  Company Number: US-SA-2025SA170848

PATIENT
  Age: 81 Year
  Sex: Male

DRUGS (1)
  1. DUPIXENT [Suspect]
     Active Substance: DUPILUMAB
     Indication: Chronic obstructive pulmonary disease
     Dosage: 300 MG, QOW
     Route: 058
     Dates: start: 202505, end: 202506

REACTIONS (4)
  - Decreased appetite [Unknown]
  - Rash pruritic [Unknown]
  - Rash erythematous [Unknown]
  - Urticaria [Unknown]

NARRATIVE: CASE EVENT DATE: 20250501
